FAERS Safety Report 23723877 (Version 1)
Quarter: 2024Q2

REPORT INFORMATION
  Report Type: Spontaneous
  Country: US (occurrence: None)
  Receive Date: 20240409
  Receipt Date: 20240409
  Transmission Date: 20240715
  Serious: Yes (Hospitalization)
  Sender: FDA-Public Use
  Company Number: None

PATIENT
  Age: 45 Year
  Sex: Female

DRUGS (17)
  1. TACROLIMUS [Suspect]
     Active Substance: TACROLIMUS
     Indication: Lung transplant
     Dosage: FREQUENCY : DAILY;?
     Route: 048
     Dates: start: 20231012
  2. TACROLIMUS [Concomitant]
  3. TACROLIMUS [Concomitant]
  4. AZITHROMYCIN [Concomitant]
  5. ATOVAQUONE [Concomitant]
  6. calcium citrate + d3 max [Concomitant]
  7. CRESEMBA [Concomitant]
  8. FAMCICLOVIR [Concomitant]
  9. LEVETIRACETAM [Concomitant]
     Active Substance: LEVETIRACETAM
  10. mag-oxide [Concomitant]
  11. MELATONIN [Concomitant]
  12. MYCOPHENOLATE [Concomitant]
     Dates: end: 20240225
  13. OMEPRAZOLE [Concomitant]
  14. PAROXETINE [Concomitant]
  15. PRAVASTATIN [Concomitant]
  16. PREDNISONE [Concomitant]
  17. PREVYMIS [Concomitant]

REACTIONS (1)
  - Coronavirus infection [None]

NARRATIVE: CASE EVENT DATE: 20240405
